FAERS Safety Report 24850274 (Version 5)
Quarter: 2025Q1

REPORT INFORMATION
  Report Type: Report from Study
  Country: IT (occurrence: IT)
  Receive Date: 20250116
  Receipt Date: 20250317
  Transmission Date: 20250408
  Serious: Yes (Hospitalization, Other)
  Sender: MYLAN
  Company Number: IT-SA-2024SA372076

PATIENT
  Age: 63 Year
  Sex: Male
  Weight: 55 kg

DRUGS (14)
  1. LOPERAMIDE [Suspect]
     Active Substance: LOPERAMIDE
     Indication: HER2 positive colorectal cancer
     Dosage: 4 MILLIGRAM, TID
     Dates: start: 20241205, end: 20241210
  2. LOPERAMIDE [Suspect]
     Active Substance: LOPERAMIDE
     Indication: Prophylaxis against diarrhoea
  3. OXALIPLATIN [Suspect]
     Active Substance: OXALIPLATIN
     Indication: HER2 positive colorectal cancer
     Dates: start: 20240512, end: 20240512
  4. OXALIPLATIN [Suspect]
     Active Substance: OXALIPLATIN
     Indication: Neoplasm malignant
     Dates: start: 20241205, end: 20241205
  5. TUCATINIB [Suspect]
     Active Substance: TUCATINIB
     Indication: HER2 positive colorectal cancer
     Dosage: 300 MILLIGRAM, BID (300 MG, 2X/DAY (BID), ORAL)
     Dates: start: 20241119, end: 20241210
  6. TUCATINIB [Suspect]
     Active Substance: TUCATINIB
     Indication: Neoplasm malignant
  7. LEVOLEUCOVORIN [Suspect]
     Active Substance: LEVOLEUCOVORIN
     Indication: HER2 positive colorectal cancer
     Dates: start: 20241205, end: 20241205
  8. LEUCOVORIN [Suspect]
     Active Substance: LEUCOVORIN\LEUCOVORIN CALCIUM
     Indication: Neoplasm malignant
     Dates: start: 20241205, end: 20241205
  9. FLUOROURACIL [Suspect]
     Active Substance: FLUOROURACIL
     Indication: HER2 positive colorectal cancer
     Dates: start: 20241205, end: 20241205
  10. FLUOROURACIL [Suspect]
     Active Substance: FLUOROURACIL
     Indication: Neoplasm malignant
     Dates: start: 20241205, end: 20241207
  11. TRASTUZUMAB [Suspect]
     Active Substance: TRASTUZUMAB
     Indication: Neoplasm malignant
     Dates: start: 20241120, end: 20241120
  12. ENOXAPARIN SODIUM [Concomitant]
     Active Substance: ENOXAPARIN SODIUM
     Indication: Large intestine anastomosis
  13. PANTOPRAZOLE SODIUM [Concomitant]
     Active Substance: PANTOPRAZOLE SODIUM
     Indication: Prophylaxis
  14. ACETAMINOPHEN [Concomitant]
     Active Substance: ACETAMINOPHEN
     Indication: Large intestine anastomosis

REACTIONS (7)
  - Syncope [Recovered/Resolved]
  - Electrocardiogram ST-T segment abnormal [Unknown]
  - Diarrhoea [Recovering/Resolving]
  - General physical health deterioration [Unknown]
  - Treatment noncompliance [Unknown]
  - Drug intolerance [Unknown]
  - Off label use [Unknown]

NARRATIVE: CASE EVENT DATE: 20241205
